FAERS Safety Report 8487827-4 (Version None)
Quarter: 2012Q2

REPORT INFORMATION
  Report Type: 
  Country: None (occurrence: None)
  Receive Date: 20120402
  Receipt Date: 20110118
  Transmission Date: 20120825
  Serious: Yes (Disabling)
  Sender: FDA-Public Use
  Company Number: PHHY2011US00561

PATIENT
  Age: 66 Year
  Sex: Female
  Weight: 90.2 kg

DRUGS (1)
  1. EXFORGE [Suspect]
     Dates: end: 20101221

REACTIONS (1)
  - MYALGIA [None]
